FAERS Safety Report 6581581-9 (Version None)
Quarter: 2010Q1

REPORT INFORMATION
  Report Type: 
  Country: None (occurrence: None)
  Receive Date: 20100215
  Receipt Date: 20100204
  Transmission Date: 20100710
  Serious: Yes (Hospitalization)
  Sender: FDA-Public Use
  Company Number: JP-JNJFOC-20100105757

PATIENT
  Sex: Male
  Weight: 60 kg

DRUGS (16)
  1. FENTANYL-100 [Suspect]
     Indication: BACK PAIN
     Route: 062
  2. FENTANYL-100 [Suspect]
     Route: 062
  3. FENTANYL-100 [Suspect]
     Indication: OSTEOARTHRITIS
     Route: 062
  4. FENTANYL-100 [Suspect]
     Route: 062
  5. MAGLAX [Concomitant]
     Indication: CONSTIPATION
     Route: 048
  6. TRIAZOLAM [Concomitant]
     Indication: INSOMNIA
     Route: 048
  7. MECOBALAMIN [Concomitant]
     Indication: PAIN
     Route: 048
  8. RENIVACE [Concomitant]
     Indication: HYPERTENSION
     Route: 048
  9. DIGOSIN [Concomitant]
     Indication: ATRIAL FIBRILLATION
     Route: 048
  10. WARFARIN [Concomitant]
     Indication: ATRIAL FIBRILLATION
     Route: 048
  11. PARIET [Concomitant]
     Indication: GASTRITIS
     Route: 048
  12. CRESTOR [Concomitant]
     Indication: HYPERLIPIDAEMIA
     Route: 048
  13. VASOLAN [Concomitant]
     Indication: CONGESTIVE CARDIOMYOPATHY
     Route: 048
  14. ARTIFICIAL TEARS NOS [Concomitant]
     Indication: DRY EYE
     Route: 031
  15. TULOBUTEROL [Concomitant]
     Indication: CHRONIC OBSTRUCTIVE PULMONARY DISEASE
     Route: 062
  16. AMARYL [Concomitant]
     Indication: DIABETES MELLITUS
     Route: 048

REACTIONS (1)
  - DIABETES MELLITUS [None]
